FAERS Safety Report 7525915-7 (Version None)
Quarter: 2011Q2

REPORT INFORMATION
  Report Type: 
  Country: None (occurrence: None)
  Receive Date: 20110606
  Receipt Date: 20110524
  Transmission Date: 20111010
  Serious: Yes (Hospitalization)
  Sender: FDA-Public Use
  Company Number: B0723701A

PATIENT
  Sex: Male
  Weight: 23.8 kg

DRUGS (2)
  1. TOPOTECAN [Suspect]
     Indication: NEUROBLASTOMA
     Dosage: 3.25MG CUMULATIVE DOSE
     Route: 042
     Dates: start: 20110420
  2. IODINE 131 [Suspect]
     Indication: NEUROBLASTOMA
     Dosage: 164MCI CUMULATIVE DOSE
     Route: 042
     Dates: start: 20110420

REACTIONS (1)
  - FEBRILE BONE MARROW APLASIA [None]
